FAERS Safety Report 18173593 (Version 1)
Quarter: 2020Q3

REPORT INFORMATION
  Report Type: Spontaneous
  Country: AU (occurrence: AU)
  Receive Date: 20200819
  Receipt Date: 20200819
  Transmission Date: 20201103
  Serious: Yes (Other)
  Sender: FDA-Public Use
  Company Number: AU-INCYTE CORPORATION-2020IN008006

PATIENT

DRUGS (2)
  1. JAKAVI [Suspect]
     Active Substance: RUXOLITINIB
     Indication: PRIMARY MYELOFIBROSIS
     Dosage: 5 MG (MORNING )
     Route: 065
     Dates: start: 201803, end: 202007
  2. JAKAVI [Suspect]
     Active Substance: RUXOLITINIB
     Dosage: 10 MG (NIGHT)
     Route: 065
     Dates: start: 201803, end: 202007

REACTIONS (2)
  - Thrombocytopenia [Unknown]
  - Leukopenia [Unknown]
